FAERS Safety Report 24394285 (Version 1)
Quarter: 2024Q4

REPORT INFORMATION
  Report Type: Spontaneous
  Country: US (occurrence: US)
  Receive Date: 20241004
  Receipt Date: 20241004
  Transmission Date: 20250115
  Serious: No
  Sender: ELI LILLY AND CO
  Company Number: US-ELI_LILLY_AND_COMPANY-US202410002714

PATIENT
  Age: 52 Year
  Sex: Male

DRUGS (1)
  1. TRULICITY [Suspect]
     Active Substance: DULAGLUTIDE
     Indication: Glucose tolerance impaired
     Dosage: 4.5 MG, UNKNOWN
     Route: 058

REACTIONS (3)
  - Off label use [Unknown]
  - Injection site indentation [Unknown]
  - Injection site haemorrhage [Unknown]
